FAERS Safety Report 13321119 (Version 2)
Quarter: 2017Q1

REPORT INFORMATION
  Report Type: Report from Study
  Country: UA (occurrence: UA)
  Receive Date: 20170310
  Receipt Date: 20170316
  Transmission Date: 20170428
  Serious: Yes (Hospitalization)
  Sender: FDA-Public Use
  Company Number: UA-ASTRAZENECA-2017SE24400

PATIENT
  Age: 21066 Day
  Sex: Male

DRUGS (7)
  1. EPANOVA [Suspect]
     Active Substance: OMEGA-3-CARBOXYLIC ACIDS
     Indication: HYPERTRIGLYCERIDAEMIA
     Route: 048
     Dates: start: 20161017, end: 20170216
  2. ENAP [Concomitant]
     Active Substance: ENALAPRIL
     Indication: HYPERTENSION
     Route: 048
     Dates: start: 2015
  3. ANAPRILINUM [Concomitant]
     Indication: HYPERTENSION
     Route: 048
     Dates: start: 2015
  4. EPANOVA [Suspect]
     Active Substance: OMEGA-3-CARBOXYLIC ACIDS
     Indication: HYPERTRIGLYCERIDAEMIA
     Route: 048
     Dates: start: 20160609, end: 20160930
  5. DIAFORMIN [Concomitant]
     Active Substance: METFORMIN HYDROCHLORIDE
     Indication: TYPE 2 DIABETES MELLITUS
     Route: 048
     Dates: start: 2015
  6. GLIMEPIRIDE. [Concomitant]
     Active Substance: GLIMEPIRIDE
     Indication: TYPE 2 DIABETES MELLITUS
     Route: 048
     Dates: start: 2015
  7. ATORVASTATIN [Suspect]
     Active Substance: ATORVASTATIN
     Indication: HYPERTENSION
     Route: 048
     Dates: start: 201601

REACTIONS (1)
  - Liver abscess [Recovered/Resolved]

NARRATIVE: CASE EVENT DATE: 20170216
